FAERS Safety Report 16494204 (Version 3)
Quarter: 2020Q2

REPORT INFORMATION
  Report Type: Report from Study
  Country: CN (occurrence: CN)
  Receive Date: 20190628
  Receipt Date: 20200608
  Transmission Date: 20200713
  Serious: Yes (Hospitalization)
  Sender: FDA-Public Use
  Company Number: CN-ROCHE-2342967

PATIENT
  Age: 64 Year
  Sex: Male
  Weight: 68 kg

DRUGS (26)
  1. DOCUSATE [Concomitant]
     Active Substance: DOCUSATE
     Indication: CEREBROVASCULAR ACCIDENT
     Route: 065
     Dates: start: 20190523, end: 20190524
  2. INDERAL [Concomitant]
     Active Substance: PROPRANOLOL HYDROCHLORIDE
     Dosage: 1 TABLET
     Route: 048
     Dates: start: 20190607
  3. ACETAMINOPHEN. [Concomitant]
     Active Substance: ACETAMINOPHEN
     Route: 048
     Dates: start: 20190523, end: 20190524
  4. OLMESARTAN MEDOXOMIL. [Concomitant]
     Active Substance: OLMESARTAN MEDOXOMIL
     Indication: HYPERTENSION
     Route: 065
     Dates: start: 20190509, end: 20190531
  5. GADOPENTETIC ACID [Concomitant]
     Active Substance: GADOPENTETIC ACID
     Route: 065
     Dates: start: 20190508, end: 20190508
  6. ATEZOLIZUMAB. [Suspect]
     Active Substance: ATEZOLIZUMAB
     Indication: HEPATOCELLULAR CARCINOMA
     Dosage: DATE OF MOST RECENT DOSE OF ATEZOLIZUMAB PRIOR TO SAE (UPPER GASTROINTESTINAL BLEED) ONSET: 09/MAY/2
     Route: 042
     Dates: start: 20181012
  7. ASPIRIN 81 [Concomitant]
     Active Substance: ASPIRIN
     Indication: CEREBROVASCULAR ACCIDENT
     Dosage: 1 TABLET
     Route: 048
     Dates: start: 20190524
  8. LIPITOR [Concomitant]
     Active Substance: ATORVASTATIN CALCIUM
     Indication: CEREBROVASCULAR ACCIDENT
     Dosage: 1 TABLET
     Route: 048
     Dates: start: 20190523
  9. TYLENOL [Concomitant]
     Active Substance: ACETAMINOPHEN
     Indication: CEREBROVASCULAR ACCIDENT
     Route: 065
     Dates: start: 20190523, end: 20190524
  10. CARAFATE [Concomitant]
     Active Substance: SUCRALFATE
     Dosage: 1 TABLET
     Route: 048
     Dates: start: 20190606
  11. SODIUM CHLORIDE. [Concomitant]
     Active Substance: SODIUM CHLORIDE
     Route: 065
     Dates: start: 20190508, end: 20190508
  12. OLMESARTAN MEDOXOMIL. [Concomitant]
     Active Substance: OLMESARTAN MEDOXOMIL
     Route: 048
  13. CHRYSANTHEMUM SPP.;CLONIDINE HYDROCHLORIDE;CONCHA MARGARITIFERA;HYDROC [Concomitant]
     Indication: HYPERTENSION
     Route: 065
     Dates: start: 20190404, end: 20190509
  14. EUTHYROX [Concomitant]
     Active Substance: LEVOTHYROXINE SODIUM
     Indication: HYPOTHYROIDISM
     Route: 065
     Dates: start: 201802
  15. PLAVIX [Concomitant]
     Active Substance: CLOPIDOGREL BISULFATE
     Indication: CEREBROVASCULAR ACCIDENT
     Dosage: 1 TABLET
     Route: 048
     Dates: start: 20190523
  16. LEVOTHYROXINE SODIUM. [Concomitant]
     Active Substance: LEVOTHYROXINE SODIUM
     Route: 048
  17. NORMAL SALINE [Concomitant]
     Active Substance: SODIUM CHLORIDE
     Route: 065
  18. BARACLUDE [Concomitant]
     Active Substance: ENTECAVIR
     Indication: HEPATITIS B
     Route: 065
     Dates: start: 201510
  19. ENTECAVIR. [Concomitant]
     Active Substance: ENTECAVIR
     Route: 048
  20. BEVACIZUMAB. [Suspect]
     Active Substance: BEVACIZUMAB
     Indication: HEPATOCELLULAR CARCINOMA
     Dosage: DOSE OF LAST BEVACIZUMAB ADMINISTERED: 975 MG?DATE OF MOST RECENT DOSE OF BEVACIZUMAB: 09/MAY/2019
     Route: 042
     Dates: start: 20181012
  21. COLACE [Concomitant]
     Active Substance: DOCUSATE SODIUM
     Indication: CEREBROVASCULAR ACCIDENT
     Route: 065
     Dates: start: 20190523, end: 20190524
  22. LOVENOX [Concomitant]
     Active Substance: ENOXAPARIN SODIUM
     Indication: CEREBROVASCULAR ACCIDENT
     Route: 065
     Dates: start: 20190523, end: 20190523
  23. SENOKOT [Concomitant]
     Active Substance: SENNOSIDES
     Indication: CEREBROVASCULAR ACCIDENT
     Route: 065
     Dates: start: 20190523, end: 20190523
  24. PANTOPRAZOLE [Concomitant]
     Active Substance: PANTOPRAZOLE
     Dosage: 1 TABLET, 2 TIMES A DAY FOR 2 MONTHS THEN 1 TABLET, DAILY
     Route: 065
     Dates: start: 20190606
  25. LORATADINE. [Concomitant]
     Active Substance: LORATADINE
     Indication: PROPHYLAXIS
     Route: 065
     Dates: start: 20190507, end: 20190507
  26. LOPRAMIDE [Concomitant]
     Route: 065
     Dates: start: 20190507, end: 20190507

REACTIONS (1)
  - Upper gastrointestinal haemorrhage [Recovered/Resolved]

NARRATIVE: CASE EVENT DATE: 20190531
